FAERS Safety Report 15738884 (Version 1)
Quarter: 2018Q4

REPORT INFORMATION
  Report Type: Spontaneous
  Country: US (occurrence: US)
  Receive Date: 20181219
  Receipt Date: 20181219
  Transmission Date: 20190205
  Serious: Yes (Hospitalization, Other)
  Sender: FDA-Public Use
  Company Number: US-UNICHEM PHARMACEUTICALS (USA) INC-UCM201812-000356

PATIENT
  Age: 33 Year
  Sex: Female

DRUGS (1)
  1. DIVALPROEX SODIUM. [Suspect]
     Active Substance: DIVALPROEX SODIUM

REACTIONS (13)
  - Toxicity to various agents [Recovered/Resolved]
  - Seizure [Recovered/Resolved]
  - Encephalopathy [Recovered/Resolved]
  - Electrocardiogram QT prolonged [Recovered/Resolved]
  - Pancytopenia [Recovered/Resolved]
  - Intentional overdose [Unknown]
  - Hypocalcaemia [Recovered/Resolved]
  - Mental status changes [Recovered/Resolved]
  - Coma [Recovered/Resolved]
  - Arrhythmia supraventricular [Recovered/Resolved]
  - Hypernatraemia [Recovered/Resolved]
  - Hypothermia [Recovered/Resolved]
  - Hyperammonaemia [Recovered/Resolved]
